FAERS Safety Report 13043089 (Version 3)
Quarter: 2017Q2

REPORT INFORMATION
  Report Type: Report from Study
  Country: AU (occurrence: AU)
  Receive Date: 20161219
  Receipt Date: 20170612
  Transmission Date: 20170830
  Serious: Yes (Other)
  Sender: FDA-Public Use
  Company Number: PHHY2016AU167853

PATIENT
  Sex: Female

DRUGS (2)
  1. SANDOSTATIN LAR DEPOT [Suspect]
     Active Substance: OCTREOTIDE ACETATE
     Indication: NEUROENDOCRINE TUMOUR
     Dosage: 20 MG, UNK
     Route: 030
  2. SANDOSTATIN LAR DEPOT [Suspect]
     Active Substance: OCTREOTIDE ACETATE
     Dosage: 20 MG, UNK
     Route: 030

REACTIONS (6)
  - Aortic aneurysm [Recovered/Resolved]
  - Temporal arteritis [Unknown]
  - Nocturia [Unknown]
  - Temporal arteritis [Recovered/Resolved]
  - Polyuria [Unknown]
  - Post procedural pneumonia [Recovered/Resolved]
